FAERS Safety Report 5904394-7 (Version None)
Quarter: 2008Q3

REPORT INFORMATION
  Report Type: 
  Country: None (occurrence: None)
  Receive Date: 20080930
  Receipt Date: 20080930
  Transmission Date: 20090109
  Serious: Yes (Other)
  Sender: FDA-Public Use
  Company Number: None

PATIENT
  Age: 25 Year
  Sex: Female
  Weight: 88.4514 kg

DRUGS (1)
  1. YAZ [Suspect]
     Indication: OVARIAN CYST
     Dosage: 1 PILL DAILY PO
     Route: 048
     Dates: start: 20080721

REACTIONS (6)
  - BIPOLAR DISORDER [None]
  - HEADACHE [None]
  - MENORRHAGIA [None]
  - OLIGOMENORRHOEA [None]
  - PAIN [None]
  - RESTLESSNESS [None]
